FAERS Safety Report 8050594-2 (Version None)
Quarter: 2012Q1

REPORT INFORMATION
  Report Type: 
  Country: None (occurrence: None)
  Receive Date: 20120117
  Receipt Date: 20120111
  Transmission Date: 20120608
  Serious: Yes (Life-Threatening, Hospitalization)
  Sender: FDA-Public Use
  Company Number: FR-ASTRAZENECA-2011SE64991

PATIENT
  Age: 13933 Day
  Sex: Male

DRUGS (9)
  1. TENORMIN [Suspect]
     Indication: HYPERTENSION
     Route: 048
     Dates: end: 20111011
  2. COZAAR [Suspect]
     Indication: HYPERTENSION
     Route: 048
     Dates: end: 20111011
  3. ATORVASTATIN CALCIUM [Concomitant]
     Route: 048
  4. NEORAL [Concomitant]
     Route: 048
  5. HYPERIUM [Concomitant]
     Route: 048
  6. IMURAN [Concomitant]
     Route: 048
  7. PREDNISONE TAB [Concomitant]
     Route: 048
  8. PREVISCAN [Concomitant]
     Route: 048
  9. LOSARTAN POTASSIUM AND HYDROCHLOROTHIAZIDE [Suspect]
     Indication: HYPERTENSION
     Route: 048
     Dates: end: 20111011

REACTIONS (3)
  - HYPERKALAEMIA [None]
  - ELECTROCARDIOGRAM ABNORMAL [None]
  - ATRIOVENTRICULAR BLOCK [None]
